FAERS Safety Report 8347272-9 (Version None)
Quarter: 2012Q1

REPORT INFORMATION
  Report Type: 
  Country: None (occurrence: None)
  Receive Date: 20120315
  Receipt Date: 20110225
  Transmission Date: 20120608
  Serious: No
  Sender: FDA-Public Use
  Company Number: PHHY2011US00668

PATIENT
  Age: 54 Year
  Sex: Female

DRUGS (10)
  1. OMEPRAZOLE [Concomitant]
  2. GILENYA [Suspect]
     Indication: MULTIPLE SCLEROSIS
     Dosage: 0.5 MG, QD, ORAL 0.5 MG, QD, ORAL
     Route: 048
     Dates: start: 20101221
  3. GILENYA [Suspect]
     Indication: MULTIPLE SCLEROSIS
     Dosage: 0.5 MG, QD, ORAL 0.5 MG, QD, ORAL
     Route: 048
     Dates: start: 20110103
  4. ASCORBIC ACID [Concomitant]
  5. MOTRIN [Concomitant]
  6. AMLODIPINE [Suspect]
     Dosage: 10 MG, QD, ORAL 5 MG, QD, ORAL
     Route: 048
  7. CALCIUM CARBONATE [Concomitant]
  8. LISINOPRIL/HCTZ (HYDROCHLOROTHIAZIDE, LISINOPRIL) [Concomitant]
  9. FERRIC SULFIDE [Concomitant]
  10. ASPIRIN [Concomitant]

REACTIONS (4)
  - PARAESTHESIA [None]
  - LIGAMENT SPRAIN [None]
  - CHILLS [None]
  - HEART RATE DECREASED [None]
